FAERS Safety Report 20027799 (Version 2)
Quarter: 2021Q4

REPORT INFORMATION
  Report Type: Spontaneous
  Country: US (occurrence: US)
  Receive Date: 20211103
  Receipt Date: 20211115
  Transmission Date: 20220304
  Serious: No
  Sender: FDA-Public Use
  Company Number: US-TEVA-2021-US-1972266

PATIENT
  Sex: Female

DRUGS (1)
  1. ESTRADIOL [Suspect]
     Active Substance: ESTRADIOL
     Indication: Menopausal symptoms
     Dosage: 1 MILLIGRAM DAILY;
     Route: 048
     Dates: start: 2021

REACTIONS (11)
  - Headache [Unknown]
  - Insomnia [Unknown]
  - Hot flush [Unknown]
  - Tinnitus [Unknown]
  - Weight decreased [Unknown]
  - Uterine prolapse [Unknown]
  - Onychoclasis [Unknown]
  - Hair disorder [Unknown]
  - Drug ineffective [Unknown]
  - Product quality issue [Unknown]
  - Product formulation issue [Unknown]

NARRATIVE: CASE EVENT DATE: 20210101
